FAERS Safety Report 11334420 (Version 1)
Quarter: 2015Q3

REPORT INFORMATION
  Report Type: Other
  Country: IT (occurrence: IT)
  Receive Date: 20150804
  Receipt Date: 20150804
  Transmission Date: 20151125
  Serious: No
  Sender: FDA-Public Use
  Company Number: IT-LUPIN PHARMACEUTICALS INC.-2015-02233

PATIENT
  Age: 72 Year
  Sex: Female

DRUGS (3)
  1. LANOXIN [Concomitant]
     Active Substance: DIGOXIN
     Indication: PRODUCT USED FOR UNKNOWN INDICATION
     Route: 048
     Dates: start: 20140122, end: 20140125
  2. CLEXANE [Concomitant]
     Active Substance: ENOXAPARIN SODIUM
     Indication: PRODUCT USED FOR UNKNOWN INDICATION
     Dosage: 4000 UI
     Route: 058
     Dates: start: 20140113, end: 20140203
  3. LEVETIRACETAM. [Suspect]
     Active Substance: LEVETIRACETAM
     Indication: EPILEPSY
     Dosage: 1000MG
     Route: 048
     Dates: start: 20140115, end: 20140125

REACTIONS (1)
  - Generalised erythema [Recovering/Resolving]

NARRATIVE: CASE EVENT DATE: 20140124
